FAERS Safety Report 12400152 (Version 2)
Quarter: 2016Q2

REPORT INFORMATION
  Report Type: Spontaneous
  Country: RS (occurrence: RS)
  Receive Date: 20160524
  Receipt Date: 20160527
  Transmission Date: 20160815
  Serious: Yes (Other)
  Sender: FDA-Public Use
  Company Number: RS-ALLERGAN-1657447US

PATIENT
  Sex: Female

DRUGS (2)
  1. ESMYA [Suspect]
     Active Substance: ULIPRISTAL ACETATE
     Indication: UTERINE LEIOMYOMA
     Dosage: 5 MG, QD
     Route: 015
     Dates: start: 201412, end: 201412
  2. ESMYA [Suspect]
     Active Substance: ULIPRISTAL ACETATE
     Indication: VAGINAL HAEMORRHAGE

REACTIONS (2)
  - Intercepted drug administration error [Recovered/Resolved]
  - Sarcoma [Unknown]
